FAERS Safety Report 23047945 (Version 1)
Quarter: 2023Q4

REPORT INFORMATION
  Report Type: Other
  Country: IT (occurrence: None)
  Receive Date: 20231010
  Receipt Date: 20231010
  Transmission Date: 20240110
  Serious: Yes (Hospitalization, Other)
  Sender: FDA-Public Use
  Company Number: IT-Square-000176

PATIENT
  Age: 41 Year
  Sex: Female

DRUGS (2)
  1. ACYCLOVIR [Suspect]
     Active Substance: ACYCLOVIR
     Indication: Herpes simplex hepatitis
  2. MEROPENEM [Concomitant]
     Active Substance: MEROPENEM
     Indication: Acute hepatic failure

REACTIONS (4)
  - Herpes simplex hepatitis [Recovered/Resolved]
  - Condition aggravated [Recovered/Resolved]
  - Cytokine storm [Recovered/Resolved]
  - Maternal exposure during pregnancy [Unknown]
